FAERS Safety Report 5169833-0 (Version None)
Quarter: 2006Q4

REPORT INFORMATION
  Report Type: 
  Country: None (occurrence: None)
  Receive Date: 20061212
  Receipt Date: 20060223
  Transmission Date: 20070319
  Serious: Yes (Other)
  Sender: FDA-Public Use
  Company Number: PHBS2006BR02992

PATIENT
  Age: 29 Year
  Sex: Female
  Weight: 75 kg

DRUGS (5)
  1. TRILEPTAL [Suspect]
     Indication: BIPOLAR DISORDER
     Dosage: 300 MG, BID
     Route: 048
     Dates: start: 20060217
  2. TRILEPTAL [Suspect]
     Dosage: 300 MG, QD
     Route: 048
  3. TRILEPTAL [Suspect]
     Dosage: 60 MG/DAY
     Dates: end: 20060308
  4. VALIUM [Concomitant]
     Indication: BIPOLAR DISORDER
     Dosage: 10 MG, UNK
     Route: 048
  5. TRILEPTAL [Suspect]
     Dosage: 1 ML/DAY
     Route: 048

REACTIONS (19)
  - BACK PAIN [None]
  - CHILLS [None]
  - CYSTITIS [None]
  - DIZZINESS [None]
  - EATING DISORDER [None]
  - HEADACHE [None]
  - HYPOAESTHESIA [None]
  - INFLUENZA LIKE ILLNESS [None]
  - MALAISE [None]
  - NAUSEA [None]
  - PYREXIA [None]
  - SEROTONIN SYNDROME [None]
  - SLEEP DISORDER [None]
  - SOMNOLENCE [None]
  - TONGUE DISCOLOURATION [None]
  - TREMOR [None]
  - VERTIGO [None]
  - VISION BLURRED [None]
  - WEIGHT DECREASED [None]
